FAERS Safety Report 5027806-2 (Version None)
Quarter: 2006Q2

REPORT INFORMATION
  Report Type: 
  Country: None (occurrence: None)
  Receive Date: 20060614
  Receipt Date: 20060614
  Transmission Date: 20061013
  Serious: Yes (Life-Threatening, Other)
  Sender: FDA-Public Use
  Company Number: None

PATIENT
  Age: 40 Year
  Sex: Female
  Weight: 74.8435 kg

DRUGS (1)
  1. FLUOXETINE [Suspect]
     Dosage: 1 AM EVERY 2 MOS TO 2 1/2 MOS

REACTIONS (1)
  - DRUG INEFFECTIVE [None]
